FAERS Safety Report 7766645-6 (Version None)
Quarter: 2011Q3

REPORT INFORMATION
  Report Type: 
  Country: None (occurrence: None)
  Receive Date: 20110916
  Receipt Date: 20110902
  Transmission Date: 20111222
  Serious: No
  Sender: FDA-Public Use
  Company Number: 2011P1008508

PATIENT
  Age: 83 Year
  Sex: Female
  Weight: 61.2356 kg

DRUGS (4)
  1. PLAVIX [Concomitant]
  2. DIOVAN [Concomitant]
  3. WARFARIN SODIUM [Suspect]
     Indication: PULMONARY THROMBOSIS
     Dosage: 4 MG;QD 3 MG;QD
     Dates: start: 20101101
  4. WARFARIN SODIUM [Suspect]
     Indication: PULMONARY THROMBOSIS
     Dosage: 4 MG;QD 3 MG;QD
     Dates: start: 20101001, end: 20101101

REACTIONS (23)
  - MUSCULAR WEAKNESS [None]
  - SKIN ATROPHY [None]
  - GAIT DISTURBANCE [None]
  - SOMNOLENCE [None]
  - MUSCULOSKELETAL DISORDER [None]
  - GENERAL PHYSICAL HEALTH DETERIORATION [None]
  - INJECTION SITE HAEMORRHAGE [None]
  - FATIGUE [None]
  - MYOCARDIAL INFARCTION [None]
  - BLOOD PRESSURE SYSTOLIC INCREASED [None]
  - SCRATCH [None]
  - LACERATION [None]
  - WEIGHT INCREASED [None]
  - ASTHENIA [None]
  - EYE PAIN [None]
  - ACTIVITIES OF DAILY LIVING IMPAIRED [None]
  - BREAST ENLARGEMENT [None]
  - HAEMORRHAGE [None]
  - SUICIDAL IDEATION [None]
  - EYE HAEMORRHAGE [None]
  - DEPRESSION [None]
  - CONTUSION [None]
  - CONDITION AGGRAVATED [None]
